FAERS Safety Report 8055241-1 (Version None)
Quarter: 2012Q1

REPORT INFORMATION
  Report Type: 
  Country: None (occurrence: None)
  Receive Date: 20120119
  Receipt Date: 20120111
  Transmission Date: 20120608
  Serious: Yes (Other)
  Sender: FDA-Public Use
  Company Number: US-ASTELLAS-2012US000240

PATIENT
  Sex: Male

DRUGS (2)
  1. TARCEVA [Suspect]
     Indication: PRODUCT USED FOR UNKNOWN INDICATION
     Dosage: 150 MG, UNKNOWN/D
     Route: 048
  2. TARCEVA [Suspect]
     Dosage: 100 MG, UNKNOWN/D
     Route: 048

REACTIONS (3)
  - FATIGUE [None]
  - ASPLENIA [None]
  - DECREASED APPETITE [None]
